FAERS Safety Report 24815759 (Version 1)
Quarter: 2025Q1

REPORT INFORMATION
  Report Type: Spontaneous
  Country: US (occurrence: US)
  Receive Date: 20250107
  Receipt Date: 20250107
  Transmission Date: 20250409
  Serious: No
  Sender: JOHNSON AND JOHNSON
  Company Number: US-JNJFOC-20241274904

PATIENT

DRUGS (3)
  1. ERLEADA [Suspect]
     Active Substance: APALUTAMIDE
     Indication: Product used for unknown indication
     Route: 065
  2. ERLEADA [Suspect]
     Active Substance: APALUTAMIDE
     Route: 065
  3. ERLEADA [Suspect]
     Active Substance: APALUTAMIDE
     Route: 065

REACTIONS (3)
  - Malaise [Recovering/Resolving]
  - Ageusia [Recovering/Resolving]
  - Decreased appetite [Recovering/Resolving]
